FAERS Safety Report 12654014 (Version 6)
Quarter: 2017Q3

REPORT INFORMATION
  Report Type: Spontaneous
  Country: IT (occurrence: IT)
  Receive Date: 20160816
  Receipt Date: 20170808
  Transmission Date: 20171127
  Serious: Yes (Other)
  Sender: FDA-Public Use
  Company Number: IT-ACCORD-043086

PATIENT
  Age: 54 Year
  Sex: Female
  Weight: 78 kg

DRUGS (5)
  1. LEDERFOLIN [Concomitant]
     Active Substance: LEUCOVORIN CALCIUM
     Indication: ADENOCARCINOMA OF COLON
     Route: 042
     Dates: start: 20150721, end: 20160505
  2. ERBITUX [Suspect]
     Active Substance: CETUXIMAB
     Indication: ADENOCARCINOMA OF COLON
     Route: 042
     Dates: start: 20150721
  3. EUTIROX [Concomitant]
     Active Substance: LEVOTHYROXINE SODIUM
     Route: 048
  4. IRINOTECAN [Suspect]
     Active Substance: IRINOTECAN
     Indication: ADENOCARCINOMA OF COLON
     Route: 042
     Dates: start: 20150721
  5. FLUOROURACIL. [Suspect]
     Active Substance: FLUOROURACIL
     Indication: ADENOCARCINOMA OF COLON
     Route: 042
     Dates: start: 20150721

REACTIONS (8)
  - Diarrhoea [Recovering/Resolving]
  - Rash [Recovering/Resolving]
  - Skin lesion [Recovering/Resolving]
  - Chest pain [Not Recovered/Not Resolved]
  - Infusion related reaction [Recovering/Resolving]
  - Bladder spasm [Recovering/Resolving]
  - Strangury [Recovering/Resolving]
  - Irritable bowel syndrome [Unknown]

NARRATIVE: CASE EVENT DATE: 20150915
